FAERS Safety Report 9144694 (Version 1)
Quarter: 2013Q1

REPORT INFORMATION
  Report Type: Report from Study
  Country: FR (occurrence: FR)
  Receive Date: 20130306
  Receipt Date: 20130306
  Transmission Date: 20140127
  Serious: Yes (Hospitalization)
  Sender: FDA-Public Use
  Company Number: FR-PFIZER INC-2013072680

PATIENT
  Age: 77 Year
  Sex: Male

DRUGS (2)
  1. TORISEL [Suspect]
     Indication: MANTLE CELL LYMPHOMA
     Dosage: 175 MG, WEEKLY
     Dates: start: 20110105, end: 20110120
  2. TORISEL [Suspect]
     Dosage: 75 MG, WEEKLY
     Dates: start: 20110202, end: 20110831

REACTIONS (2)
  - Cardiac failure [Recovered/Resolved]
  - Bronchitis chronic [Unknown]
